FAERS Safety Report 8032936-7 (Version None)
Quarter: 2012Q1

REPORT INFORMATION
  Report Type: 
  Country: None (occurrence: None)
  Receive Date: 20120110
  Receipt Date: 20120104
  Transmission Date: 20120608
  Serious: Yes (Life-Threatening, Hospitalization)
  Sender: FDA-Public Use
  Company Number: DK-PFIZER INC-2009270142

PATIENT
  Age: 67 Year
  Sex: Male
  Weight: 77 kg

DRUGS (3)
  1. POTASSIUM CHLORIDE [Concomitant]
     Indication: MINERAL SUPPLEMENTATION
     Dosage: 750 MG, 2X/DAY
     Dates: start: 20090724, end: 20090915
  2. SUNITINIB MALATE [Suspect]
     Indication: RENAL CANCER METASTATIC
     Dosage: 50 MG, 1X/DAY,  IN 20 DAYS THEN PAUSE IN 22 DAYS
     Route: 048
     Dates: start: 20090828, end: 20090915
  3. FUROSEMIDE [Concomitant]
     Indication: OEDEMA
     Dosage: 40 MG, 2X/DAY
     Dates: start: 20090724

REACTIONS (1)
  - RENAL FAILURE ACUTE [None]
